FAERS Safety Report 11231212 (Version 1)
Quarter: 2015Q3

REPORT INFORMATION
  Report Type: Spontaneous
  Country: US (occurrence: US)
  Receive Date: 20150701
  Receipt Date: 20150701
  Transmission Date: 20151125
  Serious: Yes (Other)
  Sender: FDA-Public Use
  Company Number: US-PURDUE-USA-2015-0124566

PATIENT
  Age: 57 Year
  Sex: Male

DRUGS (3)
  1. OXYCODONE HCL TABLETS (RHODES 91-490) [Concomitant]
     Active Substance: OXYCODONE HYDROCHLORIDE
     Indication: BREAKTHROUGH PAIN
     Route: 048
  2. OXYCONTIN [Suspect]
     Active Substance: OXYCODONE HYDROCHLORIDE
     Dosage: 160 MG, DAILY
     Route: 048
     Dates: end: 2010
  3. OXYCONTIN [Suspect]
     Active Substance: OXYCODONE HYDROCHLORIDE
     Indication: PAIN
     Dosage: 160 MG, DAILY
     Route: 048

REACTIONS (1)
  - Cerebrovascular accident [Unknown]
